FAERS Safety Report 9383582 (Version 1)
Quarter: 2013Q3

REPORT INFORMATION
  Report Type: Spontaneous
  Country: US (occurrence: US)
  Receive Date: 20130704
  Receipt Date: 20130704
  Transmission Date: 20140515
  Serious: No
  Sender: FDA-Public Use
  Company Number: US-PFIZER INC-2013197060

PATIENT
  Age: 63 Year
  Sex: Female
  Weight: 85.26 kg

DRUGS (7)
  1. LYRICA [Suspect]
     Indication: NEUROPATHY PERIPHERAL
     Dosage: 150 MG, 3X/DAY
     Route: 048
     Dates: start: 20130628, end: 20130630
  2. LYRICA [Suspect]
     Indication: PAIN IN EXTREMITY
  3. LYRICA [Suspect]
     Indication: PARAESTHESIA
  4. CODEINE [Suspect]
     Dosage: UNK
  5. LANTUS [Concomitant]
     Indication: DIABETES MELLITUS
     Dosage: 8 MG, 2X/DAY
  6. GLIPIZIDE [Concomitant]
     Indication: DIABETES MELLITUS
     Dosage: UNK
  7. MICARDIS [Concomitant]
     Indication: BLOOD PRESSURE INCREASED
     Dosage: 40 MG, 1X/DAY

REACTIONS (5)
  - Nausea [Not Recovered/Not Resolved]
  - Gait disturbance [Recovering/Resolving]
  - Visual impairment [Unknown]
  - Diarrhoea [Recovered/Resolved]
  - Drug intolerance [Unknown]
